APPROVED DRUG PRODUCT: ATORVASTATIN CALCIUM
Active Ingredient: ATORVASTATIN CALCIUM
Strength: EQ 10MG BASE
Dosage Form/Route: TABLET;ORAL
Application: A208478 | Product #001
Applicant: PERRIGO R AND D CO
Approved: Jun 23, 2020 | RLD: No | RS: No | Type: DISCN